FAERS Safety Report 5495874-X (Version None)
Quarter: 2007Q4

REPORT INFORMATION
  Report Type: 
  Country: None (occurrence: None)
  Receive Date: 20071025
  Receipt Date: 20070206
  Transmission Date: 20080405
  Serious: No
  Sender: FDA-Public Use
  Company Number: A0626347A

PATIENT
  Age: 79 Year
  Sex: Female

DRUGS (5)
  1. ADVAIR DISKUS 100/50 [Suspect]
     Indication: ASTHMA
     Dosage: 1PUFF TWICE PER DAY
     Route: 055
  2. FLOVENT [Suspect]
     Indication: ASTHMA
     Dosage: 2PUFF TWICE PER DAY
     Route: 055
  3. LIPITOR [Concomitant]
  4. ACIPHEX [Concomitant]
  5. VITAMINS [Concomitant]

REACTIONS (4)
  - CHEST DISCOMFORT [None]
  - DRY THROAT [None]
  - DYSPHONIA [None]
  - RESPIRATION ABNORMAL [None]
